FAERS Safety Report 23404580 (Version 1)
Quarter: 2024Q1

REPORT INFORMATION
  Report Type: Report from Study
  Country: CN (occurrence: CN)
  Receive Date: 20240116
  Receipt Date: 20240116
  Transmission Date: 20240409
  Serious: Yes (Other)
  Sender: FDA-Public Use
  Company Number: CN-GTI-000085

PATIENT
  Age: 32 Year
  Sex: Female

DRUGS (6)
  1. PREDNISONE [Suspect]
     Active Substance: PREDNISONE
     Indication: Systemic lupus erythematosus
     Route: 065
  2. MYCOPHENOLATE MOFETIL [Suspect]
     Active Substance: MYCOPHENOLATE MOFETIL
     Indication: Systemic lupus erythematosus
     Dosage: 10 TIMES
     Route: 065
  3. TACROLIMUS [Suspect]
     Active Substance: TACROLIMUS
     Indication: Systemic lupus erythematosus
     Route: 065
  4. BELIMUMAB [Suspect]
     Active Substance: BELIMUMAB
     Indication: Systemic lupus erythematosus
     Dosage: 10 TIMES
     Route: 065
  5. HYDROXYCHLOROQUINE [Suspect]
     Active Substance: HYDROXYCHLOROQUINE
     Indication: Systemic lupus erythematosus
     Route: 065
  6. TELITACICEPT [Suspect]
     Active Substance: TELITACICEPT
     Indication: Systemic lupus erythematosus
     Route: 058

REACTIONS (6)
  - Systemic lupus erythematosus [Recovered/Resolved]
  - Treatment failure [Recovered/Resolved]
  - Hypocomplementaemia [Not Recovered/Not Resolved]
  - Proteinuria [Recovering/Resolving]
  - Hypoalbuminaemia [Unknown]
  - Complement factor C3 [Unknown]
